FAERS Safety Report 12392256 (Version 1)
Quarter: 2016Q2

REPORT INFORMATION
  Report Type: Spontaneous
  Country: US (occurrence: US)
  Receive Date: 20160523
  Receipt Date: 20160523
  Transmission Date: 20160815
  Serious: No
  Sender: FDA-Public Use
  Company Number: US-TEVA-647058USA

PATIENT
  Sex: Female

DRUGS (2)
  1. MYCOPHENOLATE MOFETIL. [Suspect]
     Active Substance: MYCOPHENOLATE MOFETIL
     Indication: RENAL DISORDER
     Route: 065
     Dates: start: 2014
  2. MYCOPHENOLATE MOFETIL. [Suspect]
     Active Substance: MYCOPHENOLATE MOFETIL
     Indication: RENAL DISORDER
     Route: 065
     Dates: start: 20151118

REACTIONS (7)
  - Diarrhoea [Unknown]
  - Product use issue [Unknown]
  - Peripheral swelling [Unknown]
  - Therapeutic product ineffective for unapproved indication [Unknown]
  - Weight increased [Unknown]
  - Blood pressure increased [Unknown]
  - Incorrect product storage [Unknown]

NARRATIVE: CASE EVENT DATE: 2014
